FAERS Safety Report 8229136-4 (Version None)
Quarter: 2012Q1

REPORT INFORMATION
  Report Type: 
  Country: None (occurrence: None)
  Receive Date: 20120322
  Receipt Date: 20120314
  Transmission Date: 20120608
  Serious: Yes (Other)
  Sender: FDA-Public Use
  Company Number: US-JNJFOC-20120308158

PATIENT
  Age: 56 Year
  Sex: Female

DRUGS (1)
  1. REMICADE [Suspect]
     Indication: AUTOIMMUNE DISORDER
     Route: 042

REACTIONS (3)
  - MOOD SWINGS [None]
  - DRUG INEFFECTIVE [None]
  - DEPRESSION [None]
